FAERS Safety Report 14706536 (Version 11)
Quarter: 2019Q3

REPORT INFORMATION
  Report Type: Spontaneous
  Country: US (occurrence: US)
  Receive Date: 20180402
  Receipt Date: 20190930
  Transmission Date: 20191004
  Serious: Yes (Hospitalization)
  Sender: FDA-Public Use
  Company Number: US-ACTELION-A-NJ2018-169960

PATIENT
  Age: 43 Year
  Sex: Female
  Weight: 94.79 kg

DRUGS (7)
  1. SILDENAFIL. [Concomitant]
     Active Substance: SILDENAFIL
  2. VELETRI [Suspect]
     Active Substance: EPOPROSTENOL
     Dosage: 36 NG/KG, PER MIN
     Route: 042
  3. OPSUMIT [Suspect]
     Active Substance: MACITENTAN
     Indication: PULMONARY ARTERIAL HYPERTENSION
     Dosage: 10 MG, QD
     Route: 048
  4. VELETRI [Suspect]
     Active Substance: EPOPROSTENOL
     Indication: PULMONARY ARTERIAL HYPERTENSION
     Dosage: 24 NG/KG, PER MIN
     Route: 042
  5. VELETRI [Suspect]
     Active Substance: EPOPROSTENOL
     Dosage: 42 NG/KG, PER MIN
     Route: 042
  6. WARFARIN [Concomitant]
     Active Substance: WARFARIN
  7. VELETRI [Suspect]
     Active Substance: EPOPROSTENOL
     Dosage: 45 NG/KG, PER MIN
     Route: 042

REACTIONS (13)
  - Hospitalisation [Unknown]
  - Lacrimation increased [Unknown]
  - Sneezing [Unknown]
  - Seasonal allergy [Unknown]
  - Nausea [Not Recovered/Not Resolved]
  - Blood culture positive [Unknown]
  - Rhinorrhoea [Unknown]
  - Malaise [Unknown]
  - Device infusion issue [Unknown]
  - Catheter management [Unknown]
  - Nasopharyngitis [Unknown]
  - Dizziness [Unknown]
  - Blood pressure decreased [Unknown]

NARRATIVE: CASE EVENT DATE: 20190324
